FAERS Safety Report 9445534 (Version 2)
Quarter: 2013Q3

REPORT INFORMATION
  Report Type: Spontaneous
  Country: US (occurrence: US)
  Receive Date: 20130807
  Receipt Date: 20130830
  Transmission Date: 20140515
  Serious: No
  Sender: FDA-Public Use
  Company Number: US-JNJFOC-20130709095

PATIENT
  Age: 26 Year
  Sex: Male
  Weight: 68.04 kg

DRUGS (4)
  1. INVEGA SUSTENNA [Suspect]
     Indication: SCHIZOAFFECTIVE DISORDER
     Route: 030
     Dates: start: 20130628
  2. DEPAKOTE [Concomitant]
     Route: 048
     Dates: start: 20130701
  3. COGENTIN [Concomitant]
     Route: 048
     Dates: start: 20130701
  4. ZYPREXA [Concomitant]
     Route: 048
     Dates: start: 20130701

REACTIONS (7)
  - Drug ineffective [Not Recovered/Not Resolved]
  - Hallucination, auditory [Not Recovered/Not Resolved]
  - Tachyphrenia [Not Recovered/Not Resolved]
  - Sensory disturbance [Not Recovered/Not Resolved]
  - Nightmare [Not Recovered/Not Resolved]
  - Insomnia [Not Recovered/Not Resolved]
  - Feeling hot [Not Recovered/Not Resolved]
